FAERS Safety Report 4698905-X (Version None)
Quarter: 2005Q2

REPORT INFORMATION
  Report Type: 
  Country: None (occurrence: None)
  Receive Date: 20050622
  Receipt Date: 20050622
  Transmission Date: 20051028
  Serious: Yes (Disabling, Other)
  Sender: FDA-Public Use
  Company Number: None

PATIENT
  Age: 47 Year
  Sex: Male
  Weight: 95.2554 kg

DRUGS (1)
  1. LEVAQUIN [Suspect]
     Indication: BRONCHITIS ACUTE
     Dosage: 1 DAY ORAL
     Route: 048
     Dates: start: 20050603, end: 20050613

REACTIONS (10)
  - ASTHENIA [None]
  - BACK PAIN [None]
  - HYPOAESTHESIA [None]
  - MUSCULAR WEAKNESS [None]
  - MUSCULOSKELETAL STIFFNESS [None]
  - MYALGIA [None]
  - PAIN IN EXTREMITY [None]
  - PARAESTHESIA [None]
  - TENDON RUPTURE [None]
  - VISUAL DISTURBANCE [None]
